FAERS Safety Report 4306970-4 (Version None)
Quarter: 2004Q1

REPORT INFORMATION
  Report Type: 
  Country: None (occurrence: None)
  Receive Date: 20040225
  Receipt Date: 20040211
  Transmission Date: 20041129
  Serious: Yes (Congenital Anomaly)
  Sender: FDA-Public Use
  Company Number: EWC040237895

PATIENT
  Age: 1 Day
  Sex: Female
  Weight: 3 kg

DRUGS (6)
  1. PERGOLIDE MESYLATE [Suspect]
     Dates: start: 20030301, end: 20031210
  2. FRAXIPARINE (HEPARIN-FRACTION, CALCIUM SALT) [Concomitant]
  3. ITINEROL [Concomitant]
  4. AUGMENTIN [Concomitant]
  5. GYNO-TARDYFERON [Concomitant]
  6. FLAGYL [Concomitant]

REACTIONS (2)
  - FACIAL DYSMORPHISM [None]
  - MATERNAL DRUGS AFFECTING FOETUS [None]
